FAERS Safety Report 21891764 (Version 1)
Quarter: 2023Q1

REPORT INFORMATION
  Report Type: Spontaneous
  Country: US (occurrence: US)
  Receive Date: 20230120
  Receipt Date: 20230120
  Transmission Date: 20230417
  Serious: No
  Sender: FDA-Public Use
  Company Number: US-BRISTOL-MYERS SQUIBB COMPANY-2023-008346

PATIENT
  Age: 89 Year
  Sex: Male
  Weight: 80.29 kg

DRUGS (2)
  1. ELIQUIS [Suspect]
     Active Substance: APIXABAN
     Indication: Cerebrovascular accident prophylaxis
     Route: 048
  2. AMBIEN [Concomitant]
     Active Substance: ZOLPIDEM TARTRATE
     Indication: Product used for unknown indication
     Dosage: TAKES HALF

REACTIONS (5)
  - Joint swelling [Unknown]
  - Peripheral coldness [Unknown]
  - Peripheral vascular disorder [Unknown]
  - Sleep disorder [Unknown]
  - Dyspnoea [Unknown]
